FAERS Safety Report 15121316 (Version 3)
Quarter: 2018Q3

REPORT INFORMATION
  Report Type: Spontaneous
  Country: GB (occurrence: GB)
  Receive Date: 20180709
  Receipt Date: 20180720
  Transmission Date: 20181010
  Serious: Yes (Hospitalization, Other)
  Sender: FDA-Public Use
  Company Number: GB-MYLANLABS-2018M1049710

PATIENT
  Age: 26 Year
  Sex: Male
  Weight: 79.5 kg

DRUGS (9)
  1. CLOZARIL [Suspect]
     Active Substance: CLOZAPINE
     Indication: SCHIZOPHRENIA
     Dosage: UNK
     Route: 048
     Dates: start: 20161209, end: 20180703
  2. CLOBAZAM [Concomitant]
     Active Substance: CLOBAZAM
     Indication: PRODUCT USED FOR UNKNOWN INDICATION
     Dosage: 10 MG, PM
     Dates: start: 20180703
  3. CLOZARIL [Suspect]
     Active Substance: CLOZAPINE
     Dosage: 75 MG, AM
     Route: 048
     Dates: start: 201807
  4. CLOBAZAM [Concomitant]
     Active Substance: CLOBAZAM
     Dosage: UNK
  5. SODIUM VALPROATE [Concomitant]
     Active Substance: VALPROATE SODIUM
     Indication: PRODUCT USED FOR UNKNOWN INDICATION
     Dosage: 300 MG, UNK
     Dates: start: 20180703
  6. CLOZARIL [Suspect]
     Active Substance: CLOZAPINE
     Dosage: 400 MG, PM
     Route: 048
     Dates: start: 201807
  7. SODIUM VALPROATE [Concomitant]
     Active Substance: VALPROATE SODIUM
     Dosage: 600 MG, UNK
     Dates: start: 20180710
  8. CLOZARIL [Suspect]
     Active Substance: CLOZAPINE
     Dosage: 450 MG, PM
     Route: 048
     Dates: start: 201807
  9. LIDOCAINE. [Concomitant]
     Active Substance: LIDOCAINE
     Indication: BLOOD TEST
     Dosage: UNK
     Route: 061
     Dates: start: 20180704

REACTIONS (7)
  - Epilepsy [Recovered/Resolved]
  - Fall [Unknown]
  - Confusional state [Unknown]
  - Unresponsive to stimuli [Unknown]
  - Swollen tongue [Unknown]
  - Drug dose omission [Unknown]
  - Dysarthria [Unknown]

NARRATIVE: CASE EVENT DATE: 201806
